FAERS Safety Report 24302249 (Version 2)
Quarter: 2024Q3

REPORT INFORMATION
  Report Type: Spontaneous
  Country: CN (occurrence: CN)
  Receive Date: 20240910
  Receipt Date: 20240921
  Transmission Date: 20241017
  Serious: Yes (Life-Threatening, Hospitalization)
  Sender: ROCHE
  Company Number: CN-ROCHE-10000076664

PATIENT
  Age: 71 Year
  Sex: Female
  Weight: 49.4 kg

DRUGS (6)
  1. HERCEPTIN [Suspect]
     Active Substance: TRASTUZUMAB
     Indication: Gastric cancer
     Route: 042
     Dates: start: 20240828, end: 20240828
  2. CISPLATIN [Suspect]
     Active Substance: CISPLATIN
     Indication: Gastric cancer
     Route: 042
     Dates: start: 20240828, end: 20240830
  3. CISPLATIN [Suspect]
     Active Substance: CISPLATIN
     Route: 042
     Dates: start: 20240829
  4. CISPLATIN [Suspect]
     Active Substance: CISPLATIN
     Route: 042
     Dates: start: 20240830, end: 20240830
  5. PACLITAXEL [Suspect]
     Active Substance: PACLITAXEL
     Indication: Gastric cancer
     Route: 042
     Dates: start: 20240828, end: 20240828
  6. Human Granulocyte Stimulating Factor Injection [Concomitant]
     Route: 058

REACTIONS (2)
  - Myelosuppression [Recovering/Resolving]
  - Vomiting [Recovering/Resolving]

NARRATIVE: CASE EVENT DATE: 20240904
